FAERS Safety Report 6516766-0 (Version None)
Quarter: 2009Q4

REPORT INFORMATION
  Report Type: 
  Country: None (occurrence: None)
  Receive Date: 20091223
  Receipt Date: 20091215
  Transmission Date: 20100525
  Serious: No
  Sender: FDA-Public Use
  Company Number: US-B.I. PHARMACEUTICALS,INC./RIDGEFIELD-2009-BP-14538BP

PATIENT
  Sex: Male

DRUGS (7)
  1. FLOMAX [Suspect]
     Indication: NOCTURIA
     Dates: start: 20090601
  2. ALLERGY SHOTS [Concomitant]
     Indication: HYPERSENSITIVITY
  3. VYTORIN [Concomitant]
  4. LISINOPRIL [Concomitant]
  5. HYDROCHLOROTHIAZIDE [Concomitant]
  6. VITAMINS [Concomitant]
  7. SAW PALMETTO [Concomitant]

REACTIONS (2)
  - DRUG INEFFECTIVE [None]
  - NOCTURIA [None]
